FAERS Safety Report 5777763-6 (Version None)
Quarter: 2008Q2

REPORT INFORMATION
  Report Type: 
  Country: None (occurrence: None)
  Receive Date: 20080618
  Receipt Date: 20080606
  Transmission Date: 20081010
  Serious: Yes (Other)
  Sender: FDA-Public Use
  Company Number: US-PFIZER INC-2008048694

PATIENT
  Sex: Female
  Weight: 47.6 kg

DRUGS (7)
  1. LYRICA [Suspect]
     Indication: COMPLEX REGIONAL PAIN SYNDROME
  2. NEURONTIN [Suspect]
     Indication: COMPLEX REGIONAL PAIN SYNDROME
  3. THYROID TAB [Concomitant]
     Indication: HYPOTHYROIDISM
  4. LORAZEPAM [Concomitant]
     Indication: ANXIETY
  5. NORCO [Concomitant]
     Indication: COMPLEX REGIONAL PAIN SYNDROME
  6. FIORICET [Concomitant]
     Indication: COMPLEX REGIONAL PAIN SYNDROME
  7. CYMBALTA [Concomitant]
     Indication: DEPRESSION

REACTIONS (6)
  - BLINDNESS UNILATERAL [None]
  - DRUG INEFFECTIVE [None]
  - HISTOPLASMOSIS [None]
  - OEDEMA PERIPHERAL [None]
  - RETINAL DISORDER [None]
  - RETINAL HAEMORRHAGE [None]
